FAERS Safety Report 12889971 (Version 4)
Quarter: 2017Q1

REPORT INFORMATION
  Report Type: Spontaneous
  Country: US (occurrence: US)
  Receive Date: 20161027
  Receipt Date: 20170227
  Transmission Date: 20170428
  Serious: Yes (Other)
  Sender: FDA-Public Use
  Company Number: US-BAYER-2016-205293

PATIENT
  Age: 26 Year
  Sex: Female
  Weight: 68.03 kg

DRUGS (1)
  1. MIRENA [Suspect]
     Active Substance: LEVONORGESTREL
     Indication: CONTRACEPTION
     Dosage: 20 MCG/24HR, CONT
     Route: 015
     Dates: start: 20150325

REACTIONS (6)
  - Pregnancy with contraceptive device [Unknown]
  - Embedded device [None]
  - Drug ineffective [None]
  - Bacterial vaginosis [None]
  - Device expulsion [None]
  - Anxiety [None]
